FAERS Safety Report 4348660-8 (Version None)
Quarter: 2004Q1

REPORT INFORMATION
  Report Type: 
  Country: None (occurrence: None)
  Receive Date: 20040325
  Receipt Date: 20040210
  Transmission Date: 20041129
  Serious: No
  Sender: FDA-Public Use
  Company Number: USA030948501

PATIENT
  Age: 76 Year
  Sex: Female
  Weight: 63 kg

DRUGS (14)
  1. BETAPACE (STOALOL HYDROCHLORIDE) [Concomitant]
  2. FORTEO [Suspect]
     Indication: OSTEOPOROSIS
     Dosage: 20 UG/DAY
     Dates: start: 20030201
  3. LANOXIN [Concomitant]
  4. WARFARIN SODIUM [Concomitant]
  5. ZOCOR [Concomitant]
  6. SYNTHROID [Concomitant]
  7. NORVASC [Concomitant]
  8. LASIX [Concomitant]
  9. CITRACAL (CALCIUM CITRATE) [Concomitant]
  10. RESTORIL [Concomitant]
  11. ULTRACET [Concomitant]
  12. PHENERGAN [Concomitant]
  13. PROTONIX [Concomitant]
  14. STOOL SOFTNER (DOCUSATE SODIUM) [Concomitant]

REACTIONS (7)
  - ARRHYTHMIA [None]
  - BLOOD CALCIUM INCREASED [None]
  - BLOOD PRESSURE INCREASED [None]
  - DIZZINESS [None]
  - LETHARGY [None]
  - NAUSEA [None]
  - PALPITATIONS [None]
